FAERS Safety Report 17265804 (Version 1)
Quarter: 2020Q1

REPORT INFORMATION
  Report Type: Spontaneous
  Country: US (occurrence: US)
  Receive Date: 20200114
  Receipt Date: 20200114
  Transmission Date: 20200409
  Serious: No
  Sender: FDA-Public Use
  Company Number: US-DRREDDYS-USA/USA/20/0118152

PATIENT
  Sex: Female

DRUGS (1)
  1. BUPRENORPHINE AND NALOXONE SUBLINGUAL FILM 2 MG/0.5 MG AND 8MG/2MG [Suspect]
     Active Substance: BUPRENORPHINE\NALOXONE
     Indication: PRODUCT USED FOR UNKNOWN INDICATION
     Route: 065

REACTIONS (9)
  - Confusional state [Unknown]
  - Nausea [Unknown]
  - Tachycardia [Unknown]
  - Vomiting [Unknown]
  - Lethargy [Unknown]
  - Bedridden [Unknown]
  - Ill-defined disorder [Unknown]
  - Migraine [Unknown]
  - Malaise [Unknown]
